FAERS Safety Report 12071810 (Version 8)
Quarter: 2018Q3

REPORT INFORMATION
  Report Type: Report from Study
  Country: BE (occurrence: BE)
  Receive Date: 20160212
  Receipt Date: 20180911
  Transmission Date: 20181010
  Serious: Yes (Hospitalization, Other)
  Sender: FDA-Public Use
  Company Number: BE-AMGEN-BELCT2016017171

PATIENT
  Age: 57 Year
  Sex: Female
  Weight: 48.48 kg

DRUGS (13)
  1. PANITUMUMAB [Suspect]
     Active Substance: PANITUMUMAB
     Indication: COLORECTAL CANCER
     Dosage: 337.20 MG, UNK
     Route: 042
     Dates: start: 20150930, end: 20150930
  2. DABRAFENIB [Suspect]
     Active Substance: DABRAFENIB
     Indication: COLORECTAL CANCER
     Dosage: 150 MG, UNK
     Route: 048
     Dates: start: 20151123, end: 20151123
  3. TRAMETINIB [Suspect]
     Active Substance: TRAMETINIB
     Indication: BRAF V600E MUTATION POSITIVE
     Dosage: 2 MG, UNK
     Route: 048
     Dates: start: 20150917, end: 20151122
  4. PANITUMUMAB [Suspect]
     Active Substance: PANITUMUMAB
     Dosage: UNK
     Route: 042
     Dates: end: 20160121
  5. DABRAFENIB [Suspect]
     Active Substance: DABRAFENIB
     Indication: BRAF V600E MUTATION POSITIVE
     Dosage: 300 MG, UNK
     Route: 048
     Dates: start: 20150917, end: 20151122
  6. PANITUMUMAB [Suspect]
     Active Substance: PANITUMUMAB
     Dosage: UNK
     Route: 042
     Dates: start: 20160217
  7. TRAMETINIB [Suspect]
     Active Substance: TRAMETINIB
     Dosage: 1.5 MG, UNK
     Route: 048
     Dates: start: 20160106, end: 20160202
  8. PANITUMUMAB [Suspect]
     Active Substance: PANITUMUMAB
     Dosage: 337.20 MG, UNK
     Route: 042
     Dates: start: 20151012, end: 20151012
  9. DABRAFENIB [Suspect]
     Active Substance: DABRAFENIB
     Dosage: 200 MG, UNK
     Route: 048
     Dates: start: 20151223
  10. TRAMETINIB [Suspect]
     Active Substance: TRAMETINIB
     Indication: COLORECTAL CANCER
     Dosage: 1.5 MG, UNK
     Route: 048
     Dates: start: 20151216, end: 20160104
  11. PANITUMUMAB [Suspect]
     Active Substance: PANITUMUMAB
     Indication: BRAF V600E MUTATION POSITIVE
     Dosage: 337.20 MG, UNK
     Route: 042
     Dates: start: 20150917, end: 20150917
  12. DABRAFENIB [Suspect]
     Active Substance: DABRAFENIB
     Dosage: 200 MG, UNK
     Route: 048
     Dates: start: 20151216, end: 20151218
  13. DABRAFENIB [Suspect]
     Active Substance: DABRAFENIB
     Dosage: 300 MG, UNK
     Route: 048
     Dates: start: 20151218, end: 20151222

REACTIONS (1)
  - Acute kidney injury [Recovered/Resolved]

NARRATIVE: CASE EVENT DATE: 20160202
